FAERS Safety Report 9447415 (Version 2)
Quarter: 2013Q3

REPORT INFORMATION
  Report Type: Spontaneous
  Country: US (occurrence: US)
  Receive Date: 20130806
  Receipt Date: 20130912
  Transmission Date: 20140515
  Serious: Yes (Hospitalization)
  Sender: FDA-Public Use
  Company Number: AMAG201300122

PATIENT
  Age: 73 Year
  Sex: Female
  Weight: 70.7 kg

DRUGS (10)
  1. FERAHEME [Suspect]
     Indication: IRON DEFICIENCY ANAEMIA
     Dosage: 510 MG, SINGLE, IV PUSH
     Route: 042
     Dates: start: 20130722, end: 20130722
  2. TRAMADOL (TRAMADOL HYDROCHLORIDE) [Concomitant]
  3. PRAVASTATIN (PRAVASTATIN) [Concomitant]
  4. PRILOSEC  (OMEPRAZOLE) [Concomitant]
  5. CLONIDINE (CLONIDINE HYDROCHLORIDE) [Concomitant]
  6. CHLORTHALIDONE (CHLORTHALIDONE) [Concomitant]
  7. ASPIRIN [Concomitant]
  8. CARVEDILOL (CARVEDILOL) [Concomitant]
  9. ALENDRONATE (ALENDRONATE SODIUM) [Concomitant]
  10. ACETAMINOPHEN (ACETAMINOPHEN) [Concomitant]

REACTIONS (11)
  - Wheezing [None]
  - Blood pressure decreased [None]
  - Dyspnoea [None]
  - Vomiting [None]
  - Dizziness [None]
  - Restlessness [None]
  - Electrocardiogram ST segment elevation [None]
  - Anaphylactic reaction [None]
  - Hyperhidrosis [None]
  - Myocardial infarction [None]
  - Diarrhoea haemorrhagic [None]
